FAERS Safety Report 21295287 (Version 1)
Quarter: 2022Q3

REPORT INFORMATION
  Report Type: Report from Study
  Country: BE (occurrence: BE)
  Receive Date: 20220905
  Receipt Date: 20220905
  Transmission Date: 20221027
  Serious: Yes (Hospitalization)
  Sender: FDA-Public Use
  Company Number: BE-ABBVIE-22K-013-4528560-00

PATIENT
  Sex: Male

DRUGS (5)
  1. CARBIDOPA\LEVODOPA [Suspect]
     Active Substance: CARBIDOPA\LEVODOPA
     Indication: Parkinson^s disease
     Dosage: MD 3.5 ML; CD 3.2 ML/HR DURING 24 HOURS; ED 2.0 ML; CND 2.6 ML/HR
     Route: 050
     Dates: start: 20210826, end: 20211025
  2. CARBIDOPA\LEVODOPA [Suspect]
     Active Substance: CARBIDOPA\LEVODOPA
     Dosage: MD 0.0 ML; CD 3.0 ML/HR DURING 16 HOURS; ED 2.0 ML
     Route: 050
     Dates: start: 20211025, end: 20220119
  3. CARBIDOPA\LEVODOPA [Suspect]
     Active Substance: CARBIDOPA\LEVODOPA
     Dosage: MD 3.5 ML; CD 3.0 ML/HR DURING 24 HOURS; ED 1.0 ML; CND 2.6 ML/HR
     Route: 050
     Dates: start: 20220119
  4. ARTANE [Concomitant]
     Active Substance: TRIHEXYPHENIDYL HYDROCHLORIDE
     Indication: Product used for unknown indication
     Dosage: AT 8.00 HOUR
  5. VENLAFAXINE HYDROCHLORIDE [Concomitant]
     Active Substance: VENLAFAXINE HYDROCHLORIDE
     Indication: Product used for unknown indication
     Dosage: AT 8.00 HOUR

REACTIONS (1)
  - Gastrointestinal disorder [Unknown]
